FAERS Safety Report 11338063 (Version 1)
Quarter: 2015Q3

REPORT INFORMATION
  Report Type: Spontaneous
  Country: US (occurrence: US)
  Receive Date: 20150803
  Receipt Date: 20150803
  Transmission Date: 20151125
  Serious: No
  Sender: FDA-Public Use
  Company Number: US-ELI_LILLY_AND_COMPANY-US201006002096

PATIENT
  Sex: Female

DRUGS (3)
  1. ZYPREXA [Suspect]
     Active Substance: OLANZAPINE
     Dosage: 5 MG, OTHER
     Dates: start: 20100601
  2. ZYPREXA [Suspect]
     Active Substance: OLANZAPINE
     Indication: BIPOLAR DISORDER
     Dosage: 2.5 MG, EACH MORNING
     Dates: start: 20100601
  3. ZYPREXA [Suspect]
     Active Substance: OLANZAPINE
     Dosage: 5 MG, EACH MORNING

REACTIONS (9)
  - Tremor [Unknown]
  - Asthenia [Unknown]
  - Dry mouth [Unknown]
  - Abdominal discomfort [Unknown]
  - Increased appetite [Unknown]
  - Amnesia [Unknown]
  - Confusional state [Unknown]
  - Dizziness [Unknown]
  - Constipation [Unknown]
